FAERS Safety Report 4293700-8 (Version None)
Quarter: 2004Q1

REPORT INFORMATION
  Report Type: 
  Country: None (occurrence: None)
  Receive Date: 20040212
  Receipt Date: 20040205
  Transmission Date: 20041129
  Serious: Yes (Hospitalization)
  Sender: FDA-Public Use
  Company Number: FR-ROCHE-358174

PATIENT
  Age: 43 Year
  Sex: Female
  Weight: 55 kg

DRUGS (7)
  1. RIVOTRIL [Suspect]
     Indication: DRUG USE FOR UNKNOWN INDICATION
     Route: 048
     Dates: start: 20031010, end: 20031202
  2. TRILEPTAL [Suspect]
     Indication: DRUG USE FOR UNKNOWN INDICATION
     Route: 048
     Dates: start: 20031104, end: 20031202
  3. DEBRIDAT [Concomitant]
  4. SOLIAN [Concomitant]
  5. TRIATEC [Concomitant]
  6. DOLIPRANE [Concomitant]
  7. ACTRAPID [Concomitant]

REACTIONS (1)
  - HEPATITIS [None]
